FAERS Safety Report 6630902-7 (Version None)
Quarter: 2010Q1

REPORT INFORMATION
  Report Type: 
  Country: None (occurrence: None)
  Receive Date: 20100311
  Receipt Date: 20100302
  Transmission Date: 20100710
  Serious: Yes (Death, Other)
  Sender: FDA-Public Use
  Company Number: NL-GENENTECH-298986

PATIENT
  Sex: Female

DRUGS (3)
  1. RANIBIZUMAB [Suspect]
     Indication: MACULAR DEGENERATION
     Dosage: 0.5 ML, UNK
     Route: 031
     Dates: start: 20081202
  2. RANIBIZUMAB [Suspect]
     Dosage: 0.5 ML, UNK
     Route: 031
     Dates: start: 20090108
  3. RANIBIZUMAB [Suspect]
     Dosage: 0.5 ML, UNK
     Route: 031
     Dates: start: 20090210

REACTIONS (3)
  - CHOROIDAL NEOVASCULARISATION [None]
  - DEATH [None]
  - RETINAL OEDEMA [None]
